FAERS Safety Report 6731052-1 (Version None)
Quarter: 2010Q2

REPORT INFORMATION
  Report Type: 
  Country: None (occurrence: None)
  Receive Date: 20100518
  Receipt Date: 20100504
  Transmission Date: 20101027
  Serious: Yes (Other)
  Sender: FDA-Public Use
  Company Number: US-MYLANLABS-2010S1007845

PATIENT
  Age: 61 Year
  Sex: Female

DRUGS (3)
  1. METHOTREXATE [Suspect]
     Dosage: 15 MG/WEEK
     Route: 048
  2. HYDROXYCHLOROQUINE SULFATE [Concomitant]
  3. FOLIC ACID [Concomitant]

REACTIONS (2)
  - CYTOTOXIC OEDEMA [None]
  - NEUROTOXICITY [None]
